FAERS Safety Report 7315731-3 (Version None)
Quarter: 2011Q1

REPORT INFORMATION
  Report Type: 
  Country: None (occurrence: None)
  Receive Date: 20110225
  Receipt Date: 20101025
  Transmission Date: 20110831
  Serious: Yes (Hospitalization, Other)
  Sender: FDA-Public Use
  Company Number: US-BAYER-201026320NA

PATIENT
  Sex: Female
  Weight: 109 kg

DRUGS (21)
  1. FLOVENT [Concomitant]
     Indication: ASTHMA
     Route: 055
     Dates: start: 20020101, end: 20070101
  2. ASCORBIC ACID [Concomitant]
     Dates: start: 20000101, end: 20100101
  3. TRINESSA [Concomitant]
     Indication: CONTRACEPTION
     Dates: start: 20080901
  4. CIPROFLOXACIN HYDROCHLORIDE [Concomitant]
  5. UNCODEABLE ^UNCLASSIFIABLE^ [Concomitant]
  6. ALBUTEROL INHALER [Concomitant]
     Route: 055
     Dates: start: 20080204
  7. FLOVENT [Concomitant]
     Route: 055
     Dates: start: 20080204
  8. IMITREX [Concomitant]
     Indication: MIGRAINE
     Dates: start: 20080101, end: 20100101
  9. UNCODEABLE ^UNCLASSIFIABLE^ [Concomitant]
  10. PROMETHAZINE [Concomitant]
  11. MAXALT [Concomitant]
  12. AMOXICILLIN [Concomitant]
  13. UNCODEABLE ^UNCLASSIFIABLE^ [Concomitant]
  14. IBUPROFEN [Concomitant]
     Indication: PAIN
     Dosage: 600 MG (DAILY DOSE), TID, ORAL
     Route: 048
     Dates: start: 20070525
  15. FLEXERIL [Concomitant]
     Indication: MUSCLE SPASMS
     Dosage: 10 MG (DAILY DOSE), TID, ORAL
     Route: 048
     Dates: start: 20070525
  16. ALBUTEROL INHALER [Concomitant]
     Indication: ASTHMA
     Route: 055
     Dates: start: 20020101, end: 20070101
  17. YASMIN [Suspect]
     Indication: ORAL CONTRACEPTION
     Route: 048
     Dates: start: 20071127, end: 20080618
  18. ANTIBIOTICS [Concomitant]
     Dosage: UNK
     Dates: start: 20000101
  19. AZITHROMYCIN [Concomitant]
  20. SULFAMETHOXAZOLE AND TRIMETHOPRIM [Concomitant]
  21. PHENAZOPYRIDINE HCL TAB [Concomitant]

REACTIONS (11)
  - GALLBLADDER CHOLESTEROLOSIS [None]
  - GALLBLADDER NON-FUNCTIONING [None]
  - BILIARY DYSKINESIA [None]
  - DIARRHOEA [None]
  - BILIARY COLIC [None]
  - BACK PAIN [None]
  - NAUSEA [None]
  - CHOLECYSTITIS CHRONIC [None]
  - ABDOMINAL PAIN [None]
  - ABDOMINAL PAIN UPPER [None]
  - VOMITING [None]
